FAERS Safety Report 5955936-7 (Version None)
Quarter: 2008Q4

REPORT INFORMATION
  Report Type: 
  Country: None (occurrence: None)
  Receive Date: 20081112
  Receipt Date: 20081030
  Transmission Date: 20090506
  Serious: Yes (Hospitalization)
  Sender: FDA-Public Use
  Company Number: 231317K08USA

PATIENT
  Age: 63 Year
  Sex: Male

DRUGS (3)
  1. REBIF [Suspect]
     Indication: MULTIPLE SCLEROSIS
     Dosage: 44 MCG, 3 IN 1 WEEKS, SUBCUTANEOUS
     Route: 058
     Dates: start: 20050101
  2. MORPHINE [Suspect]
  3. BACLOFEN [Suspect]

REACTIONS (5)
  - CONSTIPATION [None]
  - EATING DISORDER [None]
  - FACIAL PARESIS [None]
  - MUSCULAR WEAKNESS [None]
  - PAIN [None]
